FAERS Safety Report 6139971-4 (Version None)
Quarter: 2009Q1

REPORT INFORMATION
  Report Type: 
  Country: None (occurrence: None)
  Receive Date: 20090331
  Receipt Date: 20090331
  Transmission Date: 20090719
  Serious: Yes (Other)
  Sender: FDA-Public Use
  Company Number: None

PATIENT
  Age: 16 Year
  Sex: Male
  Weight: 96.6162 kg

DRUGS (1)
  1. AMITRIPTYLINE HCL [Suspect]
     Indication: MIGRAINE
     Dosage: 10MG 1 PO
     Route: 048
     Dates: start: 20090324, end: 20090329

REACTIONS (2)
  - MUSCLE SWELLING [None]
  - NECK PAIN [None]
